FAERS Safety Report 9046929 (Version 2)
Quarter: 2013Q1

REPORT INFORMATION
  Report Type: Report from Study
  Country: AU (occurrence: AU)
  Receive Date: 20130204
  Receipt Date: 20130205
  Transmission Date: 20140127
  Serious: Yes (Hospitalization)
  Sender: FDA-Public Use
  Company Number: AU-VERTEX PHARMACEUTICALS INC.-2012-025023

PATIENT
  Age: 55 None
  Sex: Female
  Weight: 56 kg

DRUGS (6)
  1. VX-950 (TELAPREVIR) [Suspect]
     Indication: HEPATITIS C
     Dosage: 1 DF, TID
     Route: 048
     Dates: start: 20121005, end: 20121012
  2. PEGINTERFERON ALFA 2A [Suspect]
     Indication: HEPATITIS C
     Dosage: DOSAGE FORM: INJECTION
     Route: 058
     Dates: start: 20121005, end: 20121119
  3. RIBAVIRIN [Suspect]
     Indication: HEPATITIS C
     Dosage: DOSAGE FORM: TABLET, 1000 MG DAILY, VARYING DOSES
     Route: 048
     Dates: start: 20121005, end: 20121119
  4. THYROXINE [Concomitant]
     Indication: HYPOTHYROIDISM
     Dosage: 50 ?G, QD
     Route: 048
  5. SUMATRIPTAN [Concomitant]
     Indication: MIGRAINE
     Dosage: 25 MG, PRN
     Route: 048
  6. ALLOPURINOL [Concomitant]
     Indication: BLOOD URIC ACID INCREASED
     Dosage: 100 MG, QD
     Route: 048
     Dates: start: 20121018

REACTIONS (1)
  - Rash generalised [Recovered/Resolved]
